FAERS Safety Report 8616886-0 (Version None)
Quarter: 2012Q3

REPORT INFORMATION
  Report Type: 
  Country: None (occurrence: None)
  Receive Date: 20120823
  Receipt Date: 20120809
  Transmission Date: 20120928
  Serious: No
  Sender: FDA-Public Use
  Company Number: US-009507513-1208USA004730

PATIENT

DRUGS (1)
  1. NUVARING [Suspect]
     Dosage: 0.12/0.015MG, PER 24 HOURS
     Route: 067
     Dates: start: 20120808

REACTIONS (2)
  - DEVICE BREAKAGE [None]
  - DEVICE EXPULSION [None]
